FAERS Safety Report 8180496-2 (Version None)
Quarter: 2012Q1

REPORT INFORMATION
  Report Type: 
  Country: None (occurrence: None)
  Receive Date: 20120302
  Receipt Date: 20120228
  Transmission Date: 20120608
  Serious: Yes (Death, Hospitalization)
  Sender: FDA-Public Use
  Company Number: DE-B.I. PHARMACEUTICALS,INC./RIDGEFIELD-2011-DE-06361DE

PATIENT
  Sex: Female
  Weight: 75 kg

DRUGS (1)
  1. PRADAXA [Suspect]
     Dates: start: 20110301

REACTIONS (5)
  - AORTIC VALVE DISEASE [None]
  - DEATH [None]
  - MYELODYSPLASTIC SYNDROME [None]
  - HEPATIC FAILURE [None]
  - CONDITION AGGRAVATED [None]
